FAERS Safety Report 9816560 (Version 1)
Quarter: 2014Q1

REPORT INFORMATION
  Report Type: Spontaneous
  Country: US (occurrence: US)
  Receive Date: 20140114
  Receipt Date: 20140114
  Transmission Date: 20141002
  Serious: No
  Sender: FDA-Public Use
  Company Number: US-PFIZER INC-2014006699

PATIENT
  Age: 55 Year
  Sex: Female

DRUGS (5)
  1. NORVASC [Suspect]
     Dosage: UNK
  2. LISINOPRIL [Suspect]
     Dosage: UNK
  3. PREDNISONE [Suspect]
     Dosage: UNK
  4. ACCUPRIL [Suspect]
     Dosage: UNK
  5. DILAUDID [Suspect]
     Dosage: UNK

REACTIONS (1)
  - Drug hypersensitivity [Unknown]
